FAERS Safety Report 7573153-4 (Version None)
Quarter: 2011Q2

REPORT INFORMATION
  Report Type: 
  Country: None (occurrence: None)
  Receive Date: 20110627
  Receipt Date: 20110621
  Transmission Date: 20111010
  Serious: Yes (Disabling)
  Sender: FDA-Public Use
  Company Number: CA-BRISTOL-MYERS SQUIBB COMPANY-15543556

PATIENT
  Age: 43 Year
  Sex: Male

DRUGS (1)
  1. ABILIFY [Suspect]
     Indication: BIPOLAR DISORDER
     Route: 048
     Dates: start: 20110208

REACTIONS (5)
  - HEADACHE [None]
  - INSOMNIA [None]
  - HYPOAESTHESIA [None]
  - PALPITATIONS [None]
  - CHEST PAIN [None]
